FAERS Safety Report 10046639 (Version 1)
Quarter: 2014Q1

REPORT INFORMATION
  Report Type: Spontaneous
  Country: GB (occurrence: GB)
  Receive Date: 20140331
  Receipt Date: 20140331
  Transmission Date: 20141002
  Serious: Yes (Other)
  Sender: FDA-Public Use
  Company Number: GB-ROCHE-1368232

PATIENT
  Sex: Male

DRUGS (2)
  1. RIVOTRIL [Suspect]
     Indication: HERPES ZOSTER OTICUS
     Route: 065
  2. RIVOTRIL [Suspect]
     Indication: EPILEPSY

REACTIONS (2)
  - Asthenia [Unknown]
  - Drug ineffective [Unknown]
